FAERS Safety Report 7501620-8 (Version None)
Quarter: 2011Q2

REPORT INFORMATION
  Report Type: 
  Country: None (occurrence: None)
  Receive Date: 20110524
  Receipt Date: 20110512
  Transmission Date: 20111010
  Serious: Yes (Hospitalization)
  Sender: FDA-Public Use
  Company Number: IN-WATSON-2011-07064

PATIENT
  Age: 7 Year
  Sex: Male

DRUGS (2)
  1. METHYLPHENIDATE [Suspect]
     Indication: DISTURBANCE IN ATTENTION
     Route: 048
  2. RISPERIDONE [Suspect]
     Indication: ABNORMAL BEHAVIOUR
     Route: 048

REACTIONS (3)
  - AKATHISIA [None]
  - DRUG INTERACTION [None]
  - DYSKINESIA [None]
